FAERS Safety Report 7373840-7 (Version None)
Quarter: 2011Q1

REPORT INFORMATION
  Report Type: 
  Country: None (occurrence: None)
  Receive Date: 20110325
  Receipt Date: 20110318
  Transmission Date: 20110831
  Serious: No
  Sender: FDA-Public Use
  Company Number: US-PFIZER INC-2011008659

PATIENT
  Sex: Male

DRUGS (1)
  1. EFFEXOR XR [Suspect]
     Indication: DEPRESSION
     Dosage: 375 MG, 1X/DAY (150 MG QD AND 75 MG X3 QD)
     Route: 048
     Dates: start: 20080110

REACTIONS (1)
  - DRUG WITHDRAWAL SYNDROME [None]
